FAERS Safety Report 22310110 (Version 1)
Quarter: 2023Q2

REPORT INFORMATION
  Report Type: Spontaneous
  Country: DE (occurrence: DE)
  Receive Date: 20230511
  Receipt Date: 20230511
  Transmission Date: 20230722
  Serious: Yes (Hospitalization)
  Sender: FDA-Public Use
  Company Number: None

PATIENT
  Age: 34 Year
  Sex: Male
  Weight: 100 kg

DRUGS (1)
  1. CIPROFLOXACIN [Suspect]
     Active Substance: CIPROFLOXACIN
     Indication: Prostatitis
     Dosage: 250 MG TWICE A DAY FOR 6 MONTHS AND THEN EVERY NOW AND THEN FOR A MONTH UNTIL 2013
     Dates: start: 20110602, end: 20131227

REACTIONS (7)
  - Anxiety [Recovered/Resolved with Sequelae]
  - Psychiatric decompensation [Unknown]
  - Depression [Recovered/Resolved with Sequelae]
  - Extrapyramidal disorder [Recovered/Resolved with Sequelae]
  - Akathisia [Recovered/Resolved with Sequelae]
  - Sleep disorder [Recovered/Resolved]
  - Psychiatric symptom [Recovered/Resolved with Sequelae]

NARRATIVE: CASE EVENT DATE: 20130101
